FAERS Safety Report 15293387 (Version 1)
Quarter: 2018Q3

REPORT INFORMATION
  Report Type: Report from Study
  Country: US (occurrence: US)
  Receive Date: 20180820
  Receipt Date: 20180820
  Transmission Date: 20181010
  Serious: Yes (Death)
  Sender: FDA-Public Use
  Company Number: US-AMGEN-USACT2018114076

PATIENT
  Age: 69 Year
  Sex: Male
  Weight: 107.7 kg

DRUGS (14)
  1. ACYCLOVIR. [Concomitant]
     Active Substance: ACYCLOVIR
     Dosage: UNK
  2. METOPROLOL TARTRATE. [Suspect]
     Active Substance: METOPROLOL TARTRATE
     Indication: PRODUCT USED FOR UNKNOWN INDICATION
     Dosage: UNK
     Route: 065
  3. CARFILZOMIB [Suspect]
     Active Substance: CARFILZOMIB
     Indication: PLASMA CELL MYELOMA
     Dosage: 475.2 MG, PER CHEMO REGIM
     Route: 065
     Dates: start: 20180618, end: 20180802
  4. LISINOPRIL AND HYDROCHLOROTHIAZIDE [Suspect]
     Active Substance: HYDROCHLOROTHIAZIDE\LISINOPRIL
     Indication: PRODUCT USED FOR UNKNOWN INDICATION
     Dosage: UNK
     Route: 065
  5. ASPIRIN. [Concomitant]
     Active Substance: ASPIRIN
     Dosage: UNK
  6. FINASTERIDE. [Concomitant]
     Active Substance: FINASTERIDE
     Dosage: UNK
  7. DEXAMETHASONE. [Suspect]
     Active Substance: DEXAMETHASONE
     Indication: PLASMA CELL MYELOMA
     Dosage: 160 MG, PER CHEMO REGIM
     Route: 065
     Dates: start: 20180618, end: 20180808
  8. ROSUVASTATIN. [Suspect]
     Active Substance: ROSUVASTATIN
     Indication: PRODUCT USED FOR UNKNOWN INDICATION
     Dosage: UNK
     Route: 065
  9. BUSPIRONE [Concomitant]
     Active Substance: BUSPIRONE HYDROCHLORIDE
     Dosage: UNK
  10. LENALIDOMIDE [Suspect]
     Active Substance: LENALIDOMIDE
     Indication: PLASMA CELL MYELOMA
     Dosage: 315 MG, PER CHEMO REGIM
     Route: 065
     Dates: start: 20180618, end: 20180807
  11. CITALOPRAM [Concomitant]
     Active Substance: CITALOPRAM HYDROBROMIDE
     Dosage: UNK
  12. AMPHETAMINE [Suspect]
     Active Substance: AMPHETAMINE
     Indication: PRODUCT USED FOR UNKNOWN INDICATION
     Dosage: UNK
     Route: 065
  13. NITROGLYCERIN. [Suspect]
     Active Substance: NITROGLYCERIN
     Indication: PRODUCT USED FOR UNKNOWN INDICATION
     Dosage: UNK
     Route: 065
  14. FLUTICASONE FUROATE [Concomitant]
     Active Substance: FLUTICASONE FUROATE
     Dosage: UNK

REACTIONS (1)
  - Sudden death [Fatal]

NARRATIVE: CASE EVENT DATE: 20180813
